FAERS Safety Report 8825518 (Version 1)
Quarter: 2012Q4

REPORT INFORMATION
  Report Type: 
  Country: US (occurrence: US)
  Receive Date: 20121004
  Receipt Date: 20121004
  Transmission Date: 20130627
  Serious: Yes (Other)
  Sender: FDA-Public Use
  Company Number: US-JNJFOC-20120910001

PATIENT
  Age: 33 Year
  Sex: Female
  Weight: 70.31 kg

DRUGS (3)
  1. INVEGA SUSTENNA [Suspect]
     Indication: SCHIZOPHRENIA, PARANOID TYPE
     Route: 030
     Dates: start: 20120920, end: 20120920
  2. INVEGA SUSTENNA [Suspect]
     Indication: SCHIZOPHRENIA, PARANOID TYPE
     Route: 030
     Dates: start: 20120913, end: 20120913
  3. RISPERIDONE [Suspect]
     Indication: PRODUCT USED FOR UNKNOWN INDICATION
     Dosage: 14 booster pills
     Route: 048
     Dates: start: 20120915

REACTIONS (5)
  - Drug prescribing error [Not Recovered/Not Resolved]
  - Delusion [Not Recovered/Not Resolved]
  - Confusional state [Not Recovered/Not Resolved]
  - Fear [Recovered/Resolved]
  - Feeling abnormal [Recovered/Resolved]
